FAERS Safety Report 12561203 (Version 2)
Quarter: 2016Q3

REPORT INFORMATION
  Report Type: Spontaneous
  Country: US (occurrence: US)
  Receive Date: 20160715
  Receipt Date: 20160824
  Transmission Date: 20161109
  Serious: Yes (Hospitalization, Other)
  Sender: FDA-Public Use
  Company Number: US-009507513-1607USA002699

PATIENT
  Age: 75 Year
  Sex: Male

DRUGS (1)
  1. TICE BCG [Suspect]
     Active Substance: BACILLUS CALMETTE-GUERIN SUBSTRAIN TICE LIVE ANTIGEN
     Indication: BLADDER TRANSITIONAL CELL CARCINOMA
     Dosage: UNK
     Dates: start: 201408, end: 201409

REACTIONS (6)
  - Dyspnoea [Not Recovered/Not Resolved]
  - Mycobacterial infection [Not Recovered/Not Resolved]
  - Aortic aneurysm [Unknown]
  - Cough [Not Recovered/Not Resolved]
  - Radical cystectomy [Unknown]
  - Arteriovenous graft site infection [Not Recovered/Not Resolved]

NARRATIVE: CASE EVENT DATE: 201410
